FAERS Safety Report 12915619 (Version 2)
Quarter: 2017Q1

REPORT INFORMATION
  Report Type: Spontaneous
  Country: US (occurrence: US)
  Receive Date: 20161106
  Receipt Date: 20170216
  Transmission Date: 20170428
  Serious: No
  Sender: FDA-Public Use
  Company Number: US-RELYPSA-RLY2016003114

PATIENT
  Age: 68 Year
  Sex: Female

DRUGS (20)
  1. WELCHOL [Concomitant]
     Active Substance: COLESEVELAM HYDROCHLORIDE
  2. TYLENOL EXTRA STRENGTH [Concomitant]
     Active Substance: ACETAMINOPHEN
  3. PROCRIT [Concomitant]
     Active Substance: ERYTHROPOIETIN
  4. FERROUS SULFATE. [Concomitant]
     Active Substance: FERROUS SULFATE
  5. VELTASSA [Suspect]
     Active Substance: PATIROMER
     Indication: HYPERKALAEMIA
     Dosage: 8.4 G, QD
     Route: 048
     Dates: start: 20160217
  6. VITAMIN D                          /00107901/ [Concomitant]
     Active Substance: ERGOCALCIFEROL
  7. BENZONATATE. [Concomitant]
     Active Substance: BENZONATATE
  8. NOVOLOG [Concomitant]
     Active Substance: INSULIN ASPART
  9. LISINOPRIL. [Concomitant]
     Active Substance: LISINOPRIL
     Dosage: 30 MG, QD
     Dates: start: 2016
  10. LANTUS [Concomitant]
     Active Substance: INSULIN GLARGINE
  11. COREG [Concomitant]
     Active Substance: CARVEDILOL
  12. TRAVATAN Z [Concomitant]
     Active Substance: TRAVOPROST
  13. FUROSEMIDE. [Concomitant]
     Active Substance: FUROSEMIDE
  14. CALCITRIOL. [Concomitant]
     Active Substance: CALCITRIOL
  15. RENA-VITE [Concomitant]
     Active Substance: ASCORBIC ACID\BIOTIN\CALCIUM PANTOTHENATE\CYANOCOBALAMIN\FOLIC ACID\NIACINAMIDE\PYRIDOXINE HYDROCHLORIDE\RIBOFLAVIN\THIAMINE MONONITRATE
  16. MAGNESIUM OXIDE. [Concomitant]
     Active Substance: MAGNESIUM OXIDE
  17. ASPIRIN 81 [Concomitant]
     Active Substance: ASPIRIN
  18. GLIPIZIDE. [Concomitant]
     Active Substance: GLIPIZIDE
  19. PANTOPRAZOLE SODIUM. [Concomitant]
     Active Substance: PANTOPRAZOLE SODIUM
  20. LISINOPRIL. [Concomitant]
     Active Substance: LISINOPRIL
     Dosage: 20 MG, QD
     Dates: end: 2016

REACTIONS (5)
  - Wheezing [Recovered/Resolved]
  - Throat irritation [Not Recovered/Not Resolved]
  - Blood pressure increased [Not Recovered/Not Resolved]
  - Productive cough [Not Recovered/Not Resolved]
  - Nausea [Recovered/Resolved]

NARRATIVE: CASE EVENT DATE: 20161015
